FAERS Safety Report 6751902-2 (Version None)
Quarter: 2010Q2

REPORT INFORMATION
  Report Type: 
  Country: None (occurrence: None)
  Receive Date: 20100526
  Receipt Date: 20100323
  Transmission Date: 20101027
  Serious: No
  Sender: FDA-Public Use
  Company Number: 306144

PATIENT
  Age: 62 Year
  Sex: Male

DRUGS (3)
  1. VICTOZA [Suspect]
     Indication: INSULIN-REQUIRING TYPE 2 DIABETES MELLITUS
     Dosage: 1.2 MG, QD, SUBCUTANEOUS 1.8 MG, QD, SUBCUTANEOUS 1.2 MG, QD, SUBCUTANEOUS
     Route: 058
     Dates: end: 20100320
  2. VICTOZA [Suspect]
     Indication: INSULIN-REQUIRING TYPE 2 DIABETES MELLITUS
     Dosage: 1.2 MG, QD, SUBCUTANEOUS 1.8 MG, QD, SUBCUTANEOUS 1.2 MG, QD, SUBCUTANEOUS
     Route: 058
     Dates: start: 20100321, end: 20100324
  3. VICTOZA [Suspect]
     Indication: INSULIN-REQUIRING TYPE 2 DIABETES MELLITUS
     Dosage: 1.2 MG, QD, SUBCUTANEOUS 1.8 MG, QD, SUBCUTANEOUS 1.2 MG, QD, SUBCUTANEOUS
     Route: 058
     Dates: start: 20100324

REACTIONS (7)
  - BACK PAIN [None]
  - CHILLS [None]
  - CONSTIPATION [None]
  - DECREASED APPETITE [None]
  - DIARRHOEA [None]
  - DIZZINESS [None]
  - NAUSEA [None]
